FAERS Safety Report 6574269-1 (Version None)
Quarter: 2010Q1

REPORT INFORMATION
  Report Type: 
  Country: None (occurrence: None)
  Receive Date: 20100126
  Receipt Date: 20100113
  Transmission Date: 20100710
  Serious: Yes (Life-Threatening, Hospitalization, Other)
  Sender: FDA-Public Use
  Company Number: 2009021776

PATIENT
  Sex: Female
  Weight: 81.6475 kg

DRUGS (1)
  1. RHO(D) IMMUNE GLOBULIN NOS [Suspect]
     Indication: PROPHYLAXIS AGAINST RH ISOIMMUNISATION
     Dosage: 9 VIALS
     Dates: start: 20091219, end: 20091219

REACTIONS (1)
  - CHEST PAIN [None]
